FAERS Safety Report 10599324 (Version 1)
Quarter: 2014Q4

REPORT INFORMATION
  Report Type: Spontaneous
  Country: FR (occurrence: None)
  Receive Date: 20141119
  Receipt Date: 20141119
  Transmission Date: 20150529
  Serious: Yes (Hospitalization)
  Sender: FDA-Public Use
  Company Number: FK201405227

PATIENT
  Age: 63 Year
  Sex: Female

DRUGS (4)
  1. IDARUBICIN [Suspect]
     Active Substance: IDARUBICIN
     Indication: ACUTE MYELOID LEUKAEMIA
  2. LOMUSTINE (LOMUSTINE) [Suspect]
     Active Substance: LOMUSTINE
     Indication: ACUTE MYELOID LEUKAEMIA
  3. CYTARABINE (MANUFACTURER UNKNOWN) (CYTARABINE) (CYTARABINE) [Suspect]
     Active Substance: CYTARABINE
     Indication: ACUTE MYELOID LEUKAEMIA
  4. DAUNORUBICIN (DAUNORUBICIN) (DAUNORUBICIN) [Suspect]
     Active Substance: DAUNORUBICIN
     Indication: ACUTE MYELOID LEUKAEMIA

REACTIONS (11)
  - Diarrhoea [None]
  - Endocarditis [None]
  - Gastrointestinal mucosal disorder [None]
  - Mitral valve incompetence [None]
  - Tricuspid valve incompetence [None]
  - Aspiration tracheal [None]
  - Lung consolidation [None]
  - Multi-organ failure [None]
  - Sepsis [None]
  - Geotrichum infection [None]
  - Febrile neutropenia [None]
